FAERS Safety Report 6144077-4 (Version None)
Quarter: 2009Q2

REPORT INFORMATION
  Report Type: 
  Country: None (occurrence: None)
  Receive Date: 20090406
  Receipt Date: 20090326
  Transmission Date: 20091009
  Serious: Yes (Disabling)
  Sender: FDA-Public Use
  Company Number: FR-ASTRAZENECA-2008CG00666

PATIENT
  Age: 787 Month
  Sex: Female

DRUGS (3)
  1. ARIMIDEX [Suspect]
     Indication: BREAST CANCER FEMALE
     Route: 048
     Dates: start: 20030101
  2. CALCIUM D3 [Concomitant]
     Indication: OSTEOPOROSIS
  3. NOLVADEX [Concomitant]
     Indication: BREAST CANCER FEMALE
     Route: 048
     Dates: start: 20010101, end: 20030101

REACTIONS (3)
  - OSTEOLYSIS [None]
  - OSTEOPOROSIS [None]
  - PERIODONTAL DESTRUCTION [None]
